FAERS Safety Report 6719697-6 (Version None)
Quarter: 2010Q2

REPORT INFORMATION
  Report Type: 
  Country: None (occurrence: None)
  Receive Date: 20100510
  Receipt Date: 20100510
  Transmission Date: 20101027
  Serious: Yes (Hospitalization)
  Sender: FDA-Public Use
  Company Number: None

PATIENT
  Age: 71 Year
  Sex: Male

DRUGS (1)
  1. SOTALOL HCL [Suspect]
     Dosage: 120 MG TWICE A DAY ORAL (PO)
     Route: 048

REACTIONS (3)
  - DIZZINESS [None]
  - IMPAIRED DRIVING ABILITY [None]
  - VISUAL IMPAIRMENT [None]
